FAERS Safety Report 21712942 (Version 1)
Quarter: 2022Q4

REPORT INFORMATION
  Report Type: Spontaneous
  Country: US (occurrence: US)
  Receive Date: 20221212
  Receipt Date: 20221212
  Transmission Date: 20230112
  Serious: No
  Sender: FDA-Public Use
  Company Number: US-SA-SAC20221208000760

PATIENT
  Sex: Female

DRUGS (2)
  1. DUPIXENT [Suspect]
     Active Substance: DUPILUMAB
     Indication: Neurodermatitis
     Dosage: 200 MG, QOW
     Route: 058
     Dates: start: 20220208
  2. DUPIXENT [Suspect]
     Active Substance: DUPILUMAB
     Dosage: 300 MG

REACTIONS (5)
  - Weight increased [Unknown]
  - Discomfort [Unknown]
  - Scratch [Unknown]
  - Condition aggravated [Unknown]
  - Dermatitis atopic [Unknown]
